FAERS Safety Report 22278855 (Version 3)
Quarter: 2023Q2

REPORT INFORMATION
  Report Type: Report from Study
  Country: BR (occurrence: BR)
  Receive Date: 20230503
  Receipt Date: 20230608
  Transmission Date: 20230722
  Serious: Yes (Hospitalization, Other)
  Sender: FDA-Public Use
  Company Number: BR-002147023-NVSC2023BR097406

PATIENT
  Sex: Female
  Weight: 58 kg

DRUGS (6)
  1. KISQALI [Suspect]
     Active Substance: RIBOCICLIB
     Indication: Breast cancer
     Dosage: UNK
     Route: 065
     Dates: end: 20230403
  2. KISQALI [Suspect]
     Active Substance: RIBOCICLIB
     Dosage: UNK
     Route: 065
     Dates: start: 20230413
  3. KISQALI [Suspect]
     Active Substance: RIBOCICLIB
     Dosage: UNK
     Route: 065
  4. KISQALI [Suspect]
     Active Substance: RIBOCICLIB
     Dosage: 3 DOSAGE FORM, QD (STRENGTH: 200 MG) (START DATE: 2 MONTHS AGO)
     Route: 048
  5. KISQALI [Suspect]
     Active Substance: RIBOCICLIB
     Dosage: UNK
     Route: 065
     Dates: start: 20230526
  6. MORPHINE [Concomitant]
     Active Substance: MORPHINE
     Indication: Pain
     Dosage: 10 MG, TID (START DATE: 1 MONTH AGO)
     Route: 048

REACTIONS (12)
  - Pleural effusion [Unknown]
  - Dyspnoea [Recovering/Resolving]
  - Asthenia [Recovered/Resolved]
  - Muscular weakness [Recovered/Resolved]
  - Eating disorder [Recovering/Resolving]
  - Weight decreased [Recovering/Resolving]
  - Nausea [Recovering/Resolving]
  - Vomiting [Recovering/Resolving]
  - Faeces soft [Unknown]
  - Full blood count abnormal [Unknown]
  - Visual impairment [Unknown]
  - Abdominal pain upper [Unknown]
